FAERS Safety Report 6892415-7 (Version None)
Quarter: 2010Q3

REPORT INFORMATION
  Report Type: 
  Country: None (occurrence: None)
  Receive Date: 20100731
  Receipt Date: 20080709
  Transmission Date: 20110219
  Serious: Yes (Other)
  Sender: FDA-Public Use
  Company Number: US-PFIZER INC-2008040927

PATIENT
  Age: 60 Year

DRUGS (2)
  1. FLAGYL I.V. [Suspect]
     Indication: CLOSTRIDIAL INFECTION
     Route: 042
  2. AMOXICILLIN [Suspect]
     Indication: CLOSTRIDIAL INFECTION
     Route: 042

REACTIONS (1)
  - POLYNEUROPATHY [None]
